FAERS Safety Report 4709606-3 (Version None)
Quarter: 2005Q3

REPORT INFORMATION
  Report Type: 
  Country: None (occurrence: None)
  Receive Date: 20050706
  Receipt Date: 20050706
  Transmission Date: 20060218
  Serious: Yes (Other)
  Sender: FDA-Public Use
  Company Number: None

PATIENT
  Age: 62 Year
  Sex: Female

DRUGS (1)
  1. ISOVUE-370 [Suspect]
     Dosage: 85 ML      INTRAVENOU
     Route: 042
     Dates: start: 20050622, end: 20050622

REACTIONS (1)
  - PRURITUS GENERALISED [None]
